FAERS Safety Report 14496871 (Version 14)
Quarter: 2019Q3

REPORT INFORMATION
  Report Type: Spontaneous
  Country: US (occurrence: US)
  Receive Date: 20180207
  Receipt Date: 20190930
  Transmission Date: 20191004
  Serious: Yes (Other)
  Sender: FDA-Public Use
  Company Number: US-PFIZER INC-2018052958

PATIENT
  Age: 76 Year
  Sex: Female
  Weight: 70 kg

DRUGS (24)
  1. XELJANZ [Suspect]
     Active Substance: TOFACITINIB CITRATE
     Dosage: 5 MG, 2X/DAY (ONCE IN MORNING AND ONE AT NIGHT)
     Route: 048
     Dates: start: 2018, end: 2018
  2. VERAPAMIL HCL [Concomitant]
     Active Substance: VERAPAMIL HYDROCHLORIDE
     Indication: BLOOD PRESSURE ABNORMAL
     Dosage: 180 MG, 1X/DAY (TAKE 1 TABLET BY MOUTH ONE TIM)
     Route: 048
  3. PROBIOTIC ACIDOPHILUS [LACTOBACILLUS ACIDOPHILUS] [Concomitant]
     Dosage: 1 DF, DAILY (1 BY MOUTH EVERY DAY)
     Route: 048
  4. VITAMIN B12 [Concomitant]
     Active Substance: CYANOCOBALAMIN
     Dosage: 1 DF, ALTERNATE DAY
     Route: 048
  5. XELJANZ [Suspect]
     Active Substance: TOFACITINIB CITRATE
     Indication: RHEUMATOID ARTHRITIS
     Dosage: 5 MG, 2X/DAY (ONCE IN MORNING AND ONE AT NIGHT)
     Route: 048
     Dates: start: 201801, end: 2018
  6. XELJANZ [Suspect]
     Active Substance: TOFACITINIB CITRATE
     Dosage: 5 MG, 2X/DAY
     Route: 048
     Dates: start: 2018, end: 20180803
  7. VITAMIN B12 [Concomitant]
     Active Substance: CYANOCOBALAMIN
     Dosage: 2500 UG, DAILY
     Route: 048
  8. LISINOPRIL. [Concomitant]
     Active Substance: LISINOPRIL
     Dosage: 10 MG, DAILY (1 BY MOUTH EVERY DAY)
     Route: 048
  9. ALENDRONATE SODIUM. [Concomitant]
     Active Substance: ALENDRONATE SODIUM
     Dosage: UNK UNK, WEEKLY
     Dates: start: 20181022
  10. DULOXETINE. [Concomitant]
     Active Substance: DULOXETINE
     Dosage: 30 MG, UNK
  11. OXYCODONE HYDROCHLORIDE. [Concomitant]
     Active Substance: OXYCODONE HYDROCHLORIDE
     Indication: PAIN
     Dosage: 10 MG, AS NEEDED (2-3 TABLET BY MOUTH EVERY 12 H NEEDED)
     Route: 048
  12. DULOXETINE HCL [Concomitant]
     Active Substance: DULOXETINE HYDROCHLORIDE
     Dosage: 30 MG, UNK
  13. HYDROXYCHLOROQUINE SULFATE. [Concomitant]
     Active Substance: HYDROXYCHLOROQUINE SULFATE
     Dosage: 400 MG, DAILY (2 TABLETS EVERY DAY)/(TAKE 2 TABLETS BY MOUTH EVERYTAKE 2 TABLETS BY MOUTH EVERY)
     Route: 048
  14. CALCITONIN SALMON. [Concomitant]
     Active Substance: CALCITONIN SALMON
     Dosage: 1 DF, ALTERNATE DAY (ONE SPRAY DAILY IN ALTERNATE)
  15. XELJANZ [Suspect]
     Active Substance: TOFACITINIB CITRATE
     Dosage: 5 MG, 2X/DAY
     Route: 048
  16. ASPIRIN. [Concomitant]
     Active Substance: ASPIRIN
     Dosage: 81 MG, DAILY, (1 BY MOUTH EVERY DAY)
     Route: 048
  17. DULOXETINE HCL [Concomitant]
     Active Substance: DULOXETINE HYDROCHLORIDE
     Dosage: 60 MG, 1X/DAY(TAKE 1 TABLET BY MOUTH EVERY DAY)
     Route: 048
  18. METOPROLOL SUCCINATE. [Concomitant]
     Active Substance: METOPROLOL SUCCINATE
     Dosage: 50 MG, DAILY (TAKE 1 TABLET BY MOUTH EVERY .D)
     Route: 048
  19. CALCIUM CARBONATE. [Concomitant]
     Active Substance: CALCIUM CARBONATE
     Dosage: 1 DF, DAILY (STRENGTH: 600-400 MG)
     Route: 048
  20. CALCIUM + VIT D [Concomitant]
     Active Substance: CALCIUM\VITAMIN D
     Indication: BONE DISORDER
     Dosage: UNK
  21. ATORVASTATIN CALCIUM. [Concomitant]
     Active Substance: ATORVASTATIN CALCIUM
     Dosage: 10 MG, 1X/DAY (TAKE 1 TABLET BY MOUTH AT BEDT)
     Route: 048
  22. SHINGRIX [Concomitant]
     Active Substance: RECOMBINANT VARICELLA ZOSTER VIRUS (VZV) GLYCOPROTEIN E
     Dosage: 0.5 ML, UNK (2-3 MONTHS LATER REPEAT)
     Route: 030
  23. ONDANSETRON HCL [Concomitant]
     Active Substance: ONDANSETRON HYDROCHLORIDE
     Dosage: 4 MG, AS NEEDED (1 EVERY 6 HOURS AS NEEDED)
  24. VITAMIN B12 [Concomitant]
     Active Substance: CYANOCOBALAMIN
     Dosage: 1000 MG, UNK
     Route: 048

REACTIONS (21)
  - Hand fracture [Unknown]
  - Mental impairment [Unknown]
  - Back pain [Unknown]
  - Immune system disorder [Recovered/Resolved]
  - Limb injury [Recovering/Resolving]
  - Bone disorder [Unknown]
  - Discomfort [Unknown]
  - Skin exfoliation [Unknown]
  - Herpes zoster [Recovered/Resolved]
  - Dysphonia [Unknown]
  - Musculoskeletal pain [Recovering/Resolving]
  - Pain in extremity [Recovering/Resolving]
  - Therapeutic product effect delayed [Unknown]
  - Arthralgia [Recovered/Resolved]
  - Eye pain [Recovered/Resolved]
  - Neck pain [Not Recovered/Not Resolved]
  - Headache [Not Recovered/Not Resolved]
  - Finger deformity [Unknown]
  - Fall [Unknown]
  - Malaise [Unknown]
  - Viral infection [Unknown]

NARRATIVE: CASE EVENT DATE: 20181024
